FAERS Safety Report 4796464-4 (Version None)
Quarter: 2005Q4

REPORT INFORMATION
  Report Type: 
  Country: None (occurrence: None)
  Receive Date: 20051006
  Receipt Date: 20051006
  Transmission Date: 20060501
  Serious: Yes (Other)
  Sender: FDA-Public Use
  Company Number: None

PATIENT
  Sex: Female
  Weight: 86.9 kg

DRUGS (4)
  1. FLUOROURACIL [Suspect]
     Indication: ANAL CANCER
     Dosage: SEE IMAGE
     Dates: start: 20050817
  2. MITOMYCIN [Suspect]
     Dosage: SEE IMAGE
     Dates: start: 20050629, end: 20050727
  3. MITOMYCIN [Suspect]
     Dosage: SEE IMAGE
     Dates: start: 20050817
  4. RADIOTHERAPY [Suspect]
     Dosage: SEE IMAGE
     Dates: start: 20050817

REACTIONS (1)
  - DYSPNOEA AT REST [None]
